FAERS Safety Report 6286688-1 (Version None)
Quarter: 2009Q3

REPORT INFORMATION
  Report Type: 
  Country: None (occurrence: None)
  Receive Date: 20090728
  Receipt Date: 20090724
  Transmission Date: 20100115
  Serious: Yes (Death, Hospitalization, Other)
  Sender: FDA-Public Use
  Company Number: PHHY2009US15789

PATIENT
  Sex: Male

DRUGS (4)
  1. GLEEVEC [Suspect]
     Indication: CHRONIC MYELOID LEUKAEMIA
     Dosage: 400 MG, QD
     Route: 048
     Dates: start: 20061201
  2. ALDACTONE [Concomitant]
     Indication: ASCITES
     Dosage: UNK
     Dates: start: 20081101
  3. ATENOLOL [Concomitant]
     Indication: HYPERTENSION
     Dosage: 25 UNK, UNK
     Dates: start: 20020101
  4. ARAVESC [Concomitant]
     Indication: RENAL FAILURE CHRONIC
     Dosage: 700 UNK, UNK
     Dates: start: 20070101

REACTIONS (7)
  - ASTHENIA [None]
  - CONCOMITANT DISEASE PROGRESSION [None]
  - INFECTION [None]
  - PYREXIA [None]
  - STENT PLACEMENT [None]
  - TREMOR [None]
  - WHITE BLOOD CELL COUNT INCREASED [None]
